FAERS Safety Report 10008746 (Version 2)
Quarter: 2014Q1

REPORT INFORMATION
  Report Type: Spontaneous
  Country: None (occurrence: US)
  Receive Date: 20140312
  Receipt Date: 20140312
  Transmission Date: 20141002
  Serious: No
  Sender: FDA-Public Use
  Company Number: US-INCYTE CORPORATION-2012IN000452

PATIENT
  Sex: Male

DRUGS (1)
  1. JAKAFI [Suspect]
     Indication: LYMPHATIC DISORDER
     Dosage: 20 MG, BID
     Route: 048
     Dates: start: 20120228

REACTIONS (1)
  - Rash [Unknown]
